FAERS Safety Report 7017901-0 (Version None)
Quarter: 2010Q3

REPORT INFORMATION
  Report Type: 
  Country: None (occurrence: None)
  Receive Date: 20100928
  Receipt Date: 20100922
  Transmission Date: 20110219
  Serious: Yes (Other)
  Sender: FDA-Public Use
  Company Number: DE-SANOFI-AVENTIS-2010SA056844

PATIENT
  Sex: Male

DRUGS (11)
  1. AMIODARONE HCL [Suspect]
     Indication: ATRIAL FIBRILLATION
     Route: 048
     Dates: end: 20100101
  2. AMIODARONE HCL [Suspect]
     Route: 048
     Dates: end: 20100101
  3. AMIODARONE HCL [Suspect]
     Route: 048
     Dates: start: 20100501, end: 20100530
  4. AMIODARONE HCL [Suspect]
     Route: 048
     Dates: start: 20100501, end: 20100530
  5. AMIODARONE HCL [Suspect]
     Route: 048
     Dates: start: 20100101
  6. AMIODARONE HCL [Suspect]
     Route: 048
     Dates: start: 20100101
  7. MULTAQ [Suspect]
     Indication: ATRIAL FIBRILLATION
     Route: 048
     Dates: start: 20100201
  8. BISOPROLOL FUMARATE [Concomitant]
     Indication: PRODUCT USED FOR UNKNOWN INDICATION
     Dosage: FROM 1.25 MG INCREASED TO 5 MG
     Route: 048
  9. CLEXANE [Concomitant]
     Indication: THROMBOSIS PROPHYLAXIS
     Dates: start: 20100101
  10. ATACAND [Concomitant]
     Indication: PRODUCT USED FOR UNKNOWN INDICATION
  11. ASPIRIN [Concomitant]
     Indication: PRODUCT USED FOR UNKNOWN INDICATION
     Route: 048

REACTIONS (2)
  - HYPERTHYROIDISM [None]
  - RASH GENERALISED [None]
